FAERS Safety Report 4861870-6 (Version None)
Quarter: 2005Q4

REPORT INFORMATION
  Report Type: 
  Country: None (occurrence: None)
  Receive Date: 20051130
  Receipt Date: 20050711
  Transmission Date: 20060501
  Serious: Yes (Hospitalization)
  Sender: FDA-Public Use
  Company Number: 200511377BWH

PATIENT
  Age: 70 Year
  Sex: Male

DRUGS (1)
  1. CIPRO [Suspect]
     Indication: ARTHROPOD BITE
     Dosage: 500MG, BID, ORAL
     Route: 048

REACTIONS (2)
  - GASTROINTESTINAL HAEMORRHAGE [None]
  - HAEMOGLOBIN DECREASED [None]
